FAERS Safety Report 8198759-3 (Version None)
Quarter: 2012Q1

REPORT INFORMATION
  Report Type: 
  Country: None (occurrence: None)
  Receive Date: 20120309
  Receipt Date: 20120206
  Transmission Date: 20120608
  Serious: No
  Sender: FDA-Public Use
  Company Number: US-AMGEN-USASP2012007975

PATIENT
  Age: 70 Year
  Sex: Female

DRUGS (5)
  1. PROLIA [Suspect]
     Indication: OSTEOPOROSIS POSTMENOPAUSAL
     Route: 058
     Dates: start: 20120131
  2. LISINOPRIL [Concomitant]
  3. NEXIUM [Concomitant]
  4. VITAMIN TAB [Concomitant]
  5. LIPITOR [Concomitant]

REACTIONS (8)
  - DIZZINESS [None]
  - ARTHRALGIA [None]
  - GAIT DISTURBANCE [None]
  - MYALGIA [None]
  - DISORIENTATION [None]
  - BACK PAIN [None]
  - INJECTION SITE HAEMATOMA [None]
  - MUSCULOSKELETAL CHEST PAIN [None]
